FAERS Safety Report 7652318-7 (Version None)
Quarter: 2011Q3

REPORT INFORMATION
  Report Type: 
  Country: None (occurrence: None)
  Receive Date: 20110722
  Receipt Date: 20110405
  Transmission Date: 20111222
  Serious: Yes (Hospitalization)
  Sender: FDA-Public Use
  Company Number: UTC-006146

PATIENT
  Age: 61 Year
  Sex: Male
  Weight: 71.8 kg

DRUGS (3)
  1. REMODULIN [Suspect]
     Dosage: INTRAVENOUS
     Route: 042
     Dates: start: 20050201
  2. DIURETICS (DIURETICS) [Concomitant]
  3. COUMADIN [Concomitant]

REACTIONS (4)
  - TACHYCARDIA [None]
  - PAIN IN JAW [None]
  - DIARRHOEA [None]
  - FLUSHING [None]
